FAERS Safety Report 10262305 (Version 2)
Quarter: 2014Q3

REPORT INFORMATION
  Report Type: Spontaneous
  Country: IT (occurrence: IT)
  Receive Date: 20140626
  Receipt Date: 20140708
  Transmission Date: 20150326
  Serious: Yes (Life-Threatening)
  Sender: FDA-Public Use
  Company Number: IT-TEVA-490369ISR

PATIENT
  Age: 67 Year
  Sex: Female

DRUGS (3)
  1. CITALOPRAM ABC 20 MG [Concomitant]
     Dosage: 20 MILLIGRAM DAILY;
     Route: 048
  2. HALCION [Concomitant]
     Active Substance: TRIAZOLAM
  3. PACLITAXEL TEVA [Suspect]
     Active Substance: PACLITAXEL
     Indication: BREAST CANCER STAGE IV
     Dosage: 140 MILLIGRAM DAILY;
     Route: 042
     Dates: start: 20140619, end: 20140619

REACTIONS (3)
  - Hyperaemia [Recovered/Resolved]
  - Syncope [Recovered/Resolved]
  - Hypoxia [Recovered/Resolved]

NARRATIVE: CASE EVENT DATE: 20140619
